FAERS Safety Report 8945996 (Version 2)
Quarter: 2013Q1

REPORT INFORMATION
  Report Type: Spontaneous
  Country: US (occurrence: US)
  Receive Date: 20121205
  Receipt Date: 20130129
  Transmission Date: 20140127
  Serious: Yes (Death, Hospitalization)
  Sender: FDA-Public Use
  Company Number: US-BAYER-2012-127183

PATIENT
  Age: 39 Year
  Sex: Female
  Weight: 125 kg

DRUGS (1)
  1. YASMIN [Suspect]
     Dosage: UNK
     Dates: start: 20020201, end: 200209

REACTIONS (8)
  - Pulmonary embolism [Fatal]
  - Pain [Fatal]
  - Injury [Fatal]
  - General physical health deterioration [Fatal]
  - Emotional distress [None]
  - Anxiety [None]
  - Anhedonia [None]
  - Pain [None]
